FAERS Safety Report 16880487 (Version 1)
Quarter: 2019Q4

REPORT INFORMATION
  Report Type: Spontaneous
  Country: US (occurrence: US)
  Receive Date: 20190807
  Receipt Date: 20190807
  Transmission Date: 20200122
  Serious: Yes (Hospitalization)
  Sender: FDA-Public Use
  Company Number: None

PATIENT
  Age: 72 Year
  Sex: Male
  Weight: 134.72 kg

DRUGS (1)
  1. SULFAMETHIZOLE/TRIMETHOPRIM [Suspect]
     Active Substance: SULFAMETHIZOLE\TRIMETHOPRIM
     Indication: DIABETIC FOOT INFECTION
     Route: 048
     Dates: start: 20181009, end: 20181020

REACTIONS (9)
  - Rash [None]
  - Blood urea increased [None]
  - Blister [None]
  - Renal impairment [None]
  - Chronic kidney disease [None]
  - Hyperkalaemia [None]
  - Purpura [None]
  - Acute kidney injury [None]
  - Blood creatinine increased [None]

NARRATIVE: CASE EVENT DATE: 20181020
